FAERS Safety Report 6148791-6 (Version None)
Quarter: 2009Q2

REPORT INFORMATION
  Report Type: 
  Country: None (occurrence: None)
  Receive Date: 20090408
  Receipt Date: 20090406
  Transmission Date: 20091009
  Serious: Yes (Death, Hospitalization, Other)
  Sender: FDA-Public Use
  Company Number: US-ABBOTT-09P-163-0566488-00

PATIENT
  Sex: Male

DRUGS (12)
  1. ZEMPLAR [Suspect]
     Indication: RENAL FAILURE
     Dosage: 6MCG 4 MCG WASTED.
     Dates: start: 20090101
  2. BENOFER [Concomitant]
     Indication: RENAL FAILURE
     Dosage: TAKEN WITH DIALYSIS
  3. EPOGEN [Concomitant]
     Indication: RENAL FAILURE
     Dosage: TAKEN WITH DIALYSIS
  4. ALLOPURINOL [Concomitant]
     Indication: DRUG USE FOR UNKNOWN INDICATION
  5. QUININE SULFATE [Concomitant]
     Indication: DRUG USE FOR UNKNOWN INDICATION
  6. ENALAPRIL [Concomitant]
     Indication: DRUG USE FOR UNKNOWN INDICATION
  7. POTCHRLIDE [Concomitant]
     Indication: DRUG USE FOR UNKNOWN INDICATION
  8. PREVACID [Concomitant]
     Indication: GASTROOESOPHAGEAL REFLUX DISEASE
     Dosage: UNKNOWN
  9. LASIX [Concomitant]
     Indication: DRUG USE FOR UNKNOWN INDICATION
     Dosage: UNKNOWN
  10. COREG [Concomitant]
     Indication: DRUG USE FOR UNKNOWN INDICATION
  11. KLONOPIN [Concomitant]
     Indication: DRUG USE FOR UNKNOWN INDICATION
     Dosage: UNKNOWN
  12. HUMULIN 70/30 [Concomitant]
     Indication: DIABETES MELLITUS
     Dosage: 75 UNITS IN THE AM, 25 UNITS IN THE PM 25 UNITS IN THE PM

REACTIONS (1)
  - HYPERTENSION [None]
